FAERS Safety Report 24710966 (Version 1)
Quarter: 2024Q4

REPORT INFORMATION
  Report Type: Spontaneous
  Country: US (occurrence: None)
  Receive Date: 20241206
  Receipt Date: 20241206
  Transmission Date: 20250115
  Serious: Yes (Hospitalization)
  Sender: Public
  Company Number: None

PATIENT
  Sex: Female

DRUGS (1)
  1. ENTECAVIR [Suspect]
     Active Substance: ENTECAVIR
     Indication: Acute lymphocytic leukaemia
     Dosage: 0.5MG ONCE DAILY BY MOUTH
     Route: 048
     Dates: start: 202411

REACTIONS (1)
  - Pyrexia [None]
